FAERS Safety Report 4299523-8 (Version None)
Quarter: 2004Q1

REPORT INFORMATION
  Report Type: 
  Country: None (occurrence: None)
  Receive Date: 20040219
  Receipt Date: 20040209
  Transmission Date: 20041129
  Serious: Yes (Death)
  Sender: FDA-Public Use
  Company Number: GB-BRISTOL-MYERS SQUIBB COMPANY-12508131

PATIENT
  Age: 62 Year
  Sex: Male

DRUGS (3)
  1. CYCLOPHOSPHAMIDE [Suspect]
     Indication: ACQUIRED HAEMOPHILIA
     Route: 048
  2. PREDNISOLONE [Concomitant]
     Indication: ACQUIRED HAEMOPHILIA
     Route: 048
  3. ANTIHEMOPHILIC FACTOR (HUMAN) [Concomitant]

REACTIONS (1)
  - PULMONARY FIBROSIS [None]
